FAERS Safety Report 8589206-8 (Version None)
Quarter: 2012Q3

REPORT INFORMATION
  Report Type: 
  Country: None (occurrence: None)
  Receive Date: 20120813
  Receipt Date: 20120803
  Transmission Date: 20120928
  Serious: Yes (Hospitalization)
  Sender: FDA-Public Use
  Company Number: FR-JNJFOC-20120603833

PATIENT
  Sex: Male
  Weight: 80 kg

DRUGS (6)
  1. STELARA [Suspect]
     Dosage: 1ST INJECTION
     Route: 058
     Dates: start: 20111005
  2. STELARA [Suspect]
     Dosage: 2ND INJECTION
     Route: 058
     Dates: start: 20111109
  3. ATORVASTATIN [Concomitant]
     Indication: DYSLIPIDAEMIA
     Route: 048
  4. MICARDIS [Concomitant]
     Indication: HYPERTENSION
     Route: 048
  5. STELARA [Suspect]
     Indication: PSORIASIS
     Dosage: 2ND INJECTION
     Route: 058
     Dates: start: 20111109
  6. STELARA [Suspect]
     Indication: NAIL PSORIASIS
     Dosage: 1ST INJECTION
     Route: 058
     Dates: start: 20111005

REACTIONS (2)
  - ANAL ABSCESS [None]
  - OFF LABEL USE [None]
